FAERS Safety Report 5837169-8 (Version None)
Quarter: 2008Q3

REPORT INFORMATION
  Report Type: 
  Country: None (occurrence: None)
  Receive Date: 20080807
  Receipt Date: 20080729
  Transmission Date: 20090109
  Serious: Yes (Other)
  Sender: FDA-Public Use
  Company Number: FR-ROCHE-578715

PATIENT
  Age: 64 Year
  Sex: Male

DRUGS (15)
  1. RIVOTRIL [Suspect]
     Indication: DRUG USE FOR UNKNOWN INDICATION
     Route: 065
     Dates: start: 20080512
  2. RISPERDAL [Interacting]
     Route: 065
  3. RISPERDAL [Interacting]
     Dosage: DOSE WAS REDUCED.
     Route: 065
     Dates: start: 20080423
  4. DAFALGAN [Interacting]
     Indication: DRUG USE FOR UNKNOWN INDICATION
     Route: 065
     Dates: start: 20080409
  5. TIAPRIDAL [Interacting]
     Indication: DRUG USE FOR UNKNOWN INDICATION
     Route: 065
     Dates: start: 20080408
  6. DEPAKENE [Interacting]
     Indication: DRUG USE FOR UNKNOWN INDICATION
     Route: 048
  7. DEPAKENE [Interacting]
     Dosage: DOSE WAS DECREASED.
     Route: 048
     Dates: start: 20080609
  8. DEPAKENE [Interacting]
     Dosage: DOSE WAS INCREASED AGAIN.
     Route: 048
     Dates: start: 20080703
  9. EQUANIL [Interacting]
     Indication: DRUG USE FOR UNKNOWN INDICATION
     Route: 065
     Dates: start: 20080425
  10. FOSAMAX [Interacting]
     Indication: DRUG USE FOR UNKNOWN INDICATION
     Route: 065
     Dates: start: 20080605
  11. ANDROCUR [Interacting]
     Indication: DRUG USE FOR UNKNOWN INDICATION
     Route: 065
     Dates: start: 20080515
  12. FOLIC ACID [Concomitant]
     Dates: start: 20080429
  13. ROCEPHIN [Concomitant]
     Dates: start: 20080612
  14. PROFENID [Concomitant]
     Dates: start: 20080619
  15. TRANSIPEG [Concomitant]
     Dates: start: 20080410

REACTIONS (3)
  - CONVULSION [None]
  - DRUG INEFFECTIVE [None]
  - DRUG INTERACTION [None]
